FAERS Safety Report 14140043 (Version 1)
Quarter: 2017Q4

REPORT INFORMATION
  Report Type: Spontaneous
  Country: US (occurrence: US)
  Receive Date: 20171030
  Receipt Date: 20171030
  Transmission Date: 20180321
  Serious: Yes (Hospitalization)
  Sender: FDA-Public Use
  Company Number: US-ROCHE-2015297

PATIENT
  Age: 65 Year
  Sex: Female

DRUGS (1)
  1. ACTIVASE [Suspect]
     Active Substance: ALTEPLASE
     Indication: ISCHAEMIC STROKE
     Dosage: ONGOING:NO
     Route: 065
     Dates: start: 20171023

REACTIONS (2)
  - NIH stroke scale abnormal [Unknown]
  - Angioedema [Unknown]

NARRATIVE: CASE EVENT DATE: 20171023
